FAERS Safety Report 15369117 (Version 2)
Quarter: 2018Q4

REPORT INFORMATION
  Report Type: Spontaneous
  Country: FR (occurrence: FR)
  Receive Date: 20180911
  Receipt Date: 20181018
  Transmission Date: 20190204
  Serious: Yes (Hospitalization)
  Sender: FDA-Public Use
  Company Number: FR-TEVA-2018-FR-953220

PATIENT
  Age: 33 Year
  Sex: Male
  Weight: 86 kg

DRUGS (1)
  1. LEVOFLOXACINE [Suspect]
     Active Substance: LEVOFLOXACIN
     Indication: TONSILLITIS
     Route: 065
     Dates: start: 20180709, end: 20180714

REACTIONS (2)
  - Partial seizures [Recovered/Resolved with Sequelae]
  - Myoclonus [Recovered/Resolved with Sequelae]

NARRATIVE: CASE EVENT DATE: 20180721
